FAERS Safety Report 9267284 (Version 1)
Quarter: 2013Q2

REPORT INFORMATION
  Report Type: Spontaneous
  Country: US (occurrence: US)
  Receive Date: 20130502
  Receipt Date: 20130502
  Transmission Date: 20140414
  Serious: No
  Sender: FDA-Public Use
  Company Number: US-BAYER-2013-054796

PATIENT
  Age: 10 Month
  Sex: Female
  Weight: 9 kg

DRUGS (1)
  1. ALEVE TABLET [Suspect]
     Dosage: 1 DF, ONCE
     Route: 048
     Dates: start: 20130424, end: 20130424

REACTIONS (1)
  - Accidental exposure to product by child [None]
